FAERS Safety Report 22612367 (Version 1)
Quarter: 2023Q2

REPORT INFORMATION
  Report Type: Spontaneous
  Country: GB (occurrence: GB)
  Receive Date: 20230617
  Receipt Date: 20230617
  Transmission Date: 20230722
  Serious: Yes (Other)
  Sender: FDA-Public Use
  Company Number: None

PATIENT
  Age: 67 Year

DRUGS (11)
  1. PREDNISOLONE [Suspect]
     Active Substance: PREDNISOLONE
     Indication: Product used for unknown indication
     Dosage: 40 MILLIGRAM DAILY; 40MG OM 5 DAYS
     Route: 065
  2. ASPIRIN [Suspect]
     Active Substance: ASPIRIN
     Indication: Product used for unknown indication
     Dosage: 75 MILLIGRAM DAILY; UNIT DOSE: 75MG, FREQUENCY: ONCE DAILY, ADDITIONAL INFO: 28 TABLET- HELD, DUE TO
     Route: 065
  3. DIHYDROCODEINE [Concomitant]
     Active Substance: DIHYDROCODEINE
     Indication: Product used for unknown indication
     Dosage: 120 MILLIGRAM DAILY; WHEN REQUIRED, UNIT DOSE: 30MG, FREQUENCY: FOUR TIMES DAILY
  4. DOXYCYCLINE [Concomitant]
     Active Substance: DOXYCYCLINE
     Indication: Lower respiratory tract infection
     Dosage: 1 DOSAGE FORMS DAILY; TWO TO BE TAKEN ON THE FIRST DAY THEN ONE TO BE TAKEN EACH DAY
  5. FELODIPINE [Concomitant]
     Active Substance: FELODIPINE
     Indication: Product used for unknown indication
     Dosage: 5 MILLIGRAM DAILY; MORNING, UNIT DOSE: 5MG
  6. INDAPAMIDE [Concomitant]
     Active Substance: INDAPAMIDE
     Indication: Product used for unknown indication
     Dosage: 2.5 MILLIGRAM DAILY; MORNING, UNIT DOSE: 2.5MG
  7. LANSOPRAZOLE [Concomitant]
     Active Substance: LANSOPRAZOLE
     Indication: Product used for unknown indication
     Dosage: 30 MILLIGRAM DAILY; MORNING, UNIT DOSE: 30MG
  8. FYBOGEL [Concomitant]
     Active Substance: HERBALS\PLANTAGO OVATA SEED
     Indication: Product used for unknown indication
     Dosage: 2 DOSAGE FORMS DAILY; AFTER FOOD, UNIT DOSE: 1DF, FREQUENCY: TWICE DAILY, ADDITIONAL INFO: FYBOGEL O
  9. PREDNISOLONE [Concomitant]
     Active Substance: PREDNISOLONE
     Indication: Lower respiratory tract infection
     Dosage: 8 DOSAGE FORMS DAILY; UNIT DOSE: 8F, FREQUENCY: ONCE DAILY, ADDITIONAL INFO: 40 TABLET
  10. DICLOFENAC DIETHYLAMINE [Concomitant]
     Active Substance: DICLOFENAC DIETHYLAMINE
     Indication: Product used for unknown indication
     Dosage: APPLY THREE OR FOUR TIMES A DAY
  11. BUTYLSCOPOLAMINE BROMIDE [Concomitant]
     Active Substance: BUTYLSCOPOLAMINE BROMIDE
     Indication: Product used for unknown indication
     Dosage: 3 DOSAGE FORMS DAILY; UNIT DOSE: 1DF, FREQUENCY: THRICE DAILY, ADDITIONAL INFO: 28 TABLET

REACTIONS (2)
  - Duodenal perforation [Unknown]
  - Abdominal pain upper [Unknown]
